FAERS Safety Report 5016508-4 (Version None)
Quarter: 2006Q2

REPORT INFORMATION
  Report Type: 
  Country: None (occurrence: None)
  Receive Date: 20060602
  Receipt Date: 20051223
  Transmission Date: 20061013
  Serious: Yes (Death)
  Sender: FDA-Public Use
  Company Number: GB-AVENTIS-200610015GDDC

PATIENT
  Age: 46 Year
  Sex: Male

DRUGS (4)
  1. RIFADIN [Suspect]
     Indication: TUBERCULOSIS
     Route: 042
     Dates: start: 20051212, end: 20051227
  2. AMIKACIN [Concomitant]
     Route: 042
     Dates: start: 20051226
  3. CIPROFLOXACIN [Concomitant]
     Route: 042
     Dates: start: 20051218
  4. ISONIAZID [Concomitant]
     Indication: TUBERCULOSIS
     Route: 042
     Dates: start: 20051212

REACTIONS (4)
  - CSF TEST ABNORMAL [None]
  - HIV INFECTION [None]
  - MULTI-ORGAN FAILURE [None]
  - SEPTIC SHOCK [None]
